FAERS Safety Report 9956410 (Version 2)
Quarter: 2014Q1

REPORT INFORMATION
  Report Type: Spontaneous
  Country: PR (occurrence: PR)
  Receive Date: 20140304
  Receipt Date: 20140304
  Transmission Date: 20141002
  Serious: No
  Sender: FDA-Public Use
  Company Number: PR-ABBVIE-12P-131-1001791-00

PATIENT
  Age: 74 Year
  Sex: Female
  Weight: 61.29 kg

DRUGS (6)
  1. HUMIRA [Suspect]
     Indication: RHEUMATOID ARTHRITIS
     Route: 058
     Dates: start: 2001, end: 20121016
  2. HUMIRA [Suspect]
     Route: 058
     Dates: start: 20121102
  3. PREDNISONE [Concomitant]
     Indication: PAIN
     Route: 048
  4. FOSOMAX [Concomitant]
     Indication: RHEUMATOID ARTHRITIS
     Route: 048
  5. ZANTAC [Concomitant]
     Indication: PROPHYLAXIS
     Route: 048
  6. FOLIC ACID [Concomitant]
     Indication: PRODUCT USED FOR UNKNOWN INDICATION
     Route: 048

REACTIONS (3)
  - Malaise [Unknown]
  - Hip fracture [Recovered/Resolved]
  - Fall [Unknown]
